FAERS Safety Report 9477448 (Version 2)
Quarter: 2013Q3

REPORT INFORMATION
  Report Type: Spontaneous
  Country: US (occurrence: US)
  Receive Date: 20130826
  Receipt Date: 20130916
  Transmission Date: 20140515
  Serious: No
  Sender: FDA-Public Use
  Company Number: US-009507513-1308USA011901

PATIENT
  Sex: Female

DRUGS (1)
  1. COPPERTONE SPORT LOTION SPF 30 [Suspect]
     Indication: PRODUCT USED FOR UNKNOWN INDICATION
     Dosage: UNK, UNKNOWN
     Route: 061

REACTIONS (5)
  - Eye irritation [Unknown]
  - Eye pain [Unknown]
  - Accidental exposure to product [Unknown]
  - Product expiration date issue [Unknown]
  - Product lot number issue [Unknown]
